FAERS Safety Report 18457206 (Version 1)
Quarter: 2020Q4

REPORT INFORMATION
  Report Type: Spontaneous
  Country: US (occurrence: CA)
  Receive Date: 20201103
  Receipt Date: 20201103
  Transmission Date: 20210114
  Serious: Yes (Death, Other)
  Sender: FDA-Public Use
  Company Number: US-GLAXOSMITHKLINE-CA2020GSK217146

PATIENT

DRUGS (1)
  1. AVANDIA [Suspect]
     Active Substance: ROSIGLITAZONE MALEATE
     Indication: DIABETES MELLITUS
     Dosage: UNK UNK, QD
     Route: 048
     Dates: start: 20070201, end: 20070618

REACTIONS (4)
  - Coronary artery disease [Unknown]
  - Myocardial infarction [Unknown]
  - Death [Fatal]
  - Cardiac failure congestive [Unknown]
